FAERS Safety Report 23780097 (Version 3)
Quarter: 2025Q1

REPORT INFORMATION
  Report Type: Report from Study
  Country: GB (occurrence: GB)
  Receive Date: 20240424
  Receipt Date: 20250122
  Transmission Date: 20250409
  Serious: No
  Sender: SANDOZ
  Company Number: GB-SANDOZ-SDZ2024GB024719

PATIENT
  Sex: Male

DRUGS (1)
  1. HYRIMOZ [Suspect]
     Active Substance: ADALIMUMAB-ADAZ
     Indication: Rheumatoid arthritis
     Route: 058
     Dates: start: 202310

REACTIONS (1)
  - Drug dose omission by device [Unknown]
